FAERS Safety Report 9356903 (Version 2)
Quarter: 2014Q2

REPORT INFORMATION
  Report Type: Spontaneous
  Country: IT (occurrence: IT)
  Receive Date: 20130620
  Receipt Date: 20140519
  Transmission Date: 20141212
  Serious: Yes (Hospitalization)
  Sender: FDA-Public Use
  Company Number: IT-B.I. PHARMACEUTICALS,INC./RIDGEFIELD-2013-IT-00357IT

PATIENT
  Age: 35 Year
  Sex: Male

DRUGS (3)
  1. VIRAMUNE [Suspect]
     Indication: ANTIRETROVIRAL THERAPY
     Dosage: 400 MG
     Route: 048
     Dates: start: 20130408, end: 20130420
  2. TRUVADA [Suspect]
     Indication: ANTIRETROVIRAL THERAPY
     Dosage: STRENGTH: 200MG/ 245MG; ONE POSOLOGIC UNIT DAILY
     Route: 048
     Dates: start: 20130408, end: 20130420
  3. ALBENDAZOLE [Concomitant]
     Indication: HELMINTHIC INFECTION
     Route: 048
     Dates: start: 20130411, end: 20130418

REACTIONS (2)
  - Mental impairment [Recovered/Resolved]
  - Renal failure acute [Recovered/Resolved]
